FAERS Safety Report 18562202 (Version 1)
Quarter: 2020Q4

REPORT INFORMATION
  Report Type: Spontaneous
  Country: US (occurrence: US)
  Receive Date: 20201201
  Receipt Date: 20201201
  Transmission Date: 20210114
  Serious: No
  Sender: FDA-Public Use
  Company Number: US-ASTRAZENECA-2020SF55473

PATIENT
  Age: 3753 Week
  Sex: Female
  Weight: 64 kg

DRUGS (4)
  1. DILTIAZEM. [Concomitant]
     Active Substance: DILTIAZEM
     Indication: SUPRAVENTRICULAR EXTRASYSTOLES
     Route: 048
  2. LISINOPRIL. [Suspect]
     Active Substance: LISINOPRIL
     Indication: BLOOD PRESSURE ABNORMAL
     Route: 048
     Dates: start: 2010
  3. PULMICORT FLEXHALER [Suspect]
     Active Substance: BUDESONIDE
     Indication: LUNG DIFFUSION DISORDER
     Route: 055
     Dates: start: 20201119
  4. LOSARTAN. [Concomitant]
     Active Substance: LOSARTAN

REACTIONS (8)
  - Malaise [Unknown]
  - Cough [Recovered/Resolved]
  - Heart rate irregular [Recovered/Resolved]
  - Blood pressure inadequately controlled [Unknown]
  - Throat irritation [Unknown]
  - Product use issue [Unknown]
  - Chest pain [Not Recovered/Not Resolved]
  - Supraventricular extrasystoles [Recovered/Resolved]

NARRATIVE: CASE EVENT DATE: 20201119
